FAERS Safety Report 10029463 (Version 1)
Quarter: 2014Q1

REPORT INFORMATION
  Report Type: Spontaneous
  Country: IT (occurrence: IT)
  Receive Date: 20140322
  Receipt Date: 20140322
  Transmission Date: 20141002
  Serious: Yes (Other)
  Sender: FDA-Public Use
  Company Number: PHHY2014IT033374

PATIENT
  Age: 25 Year
  Sex: Female

DRUGS (1)
  1. FTY 720 [Suspect]
     Indication: RELAPSING-REMITTING MULTIPLE SCLEROSIS
     Route: 048
     Dates: start: 201112

REACTIONS (6)
  - Multiple sclerosis relapse [Recovering/Resolving]
  - Central nervous system lesion [Recovering/Resolving]
  - Psychomotor hyperactivity [Recovering/Resolving]
  - Sensorimotor disorder [Recovering/Resolving]
  - Aphasia [Recovering/Resolving]
  - Vasogenic cerebral oedema [Recovering/Resolving]
